FAERS Safety Report 5621980-2 (Version None)
Quarter: 2008Q1

REPORT INFORMATION
  Report Type: 
  Country: None (occurrence: None)
  Receive Date: 20080211
  Receipt Date: 20080205
  Transmission Date: 20080703
  Serious: Yes (Hospitalization)
  Sender: FDA-Public Use
  Company Number: B0507229A

PATIENT
  Age: 79 Year
  Sex: Male

DRUGS (1)
  1. ACYCLOVIR [Suspect]
     Indication: HERPES ZOSTER
     Route: 048
     Dates: start: 20080108, end: 20080110

REACTIONS (3)
  - DYSARTHRIA [None]
  - MYOCLONUS [None]
  - SENSORY DISTURBANCE [None]
